FAERS Safety Report 8344925-3 (Version None)
Quarter: 2012Q2

REPORT INFORMATION
  Report Type: 
  Country: None (occurrence: None)
  Receive Date: 20120508
  Receipt Date: 20081112
  Transmission Date: 20120825
  Serious: Yes (Other)
  Sender: FDA-Public Use
  Company Number: US-TEVA-US024793

PATIENT
  Sex: Female
  Weight: 49.94 kg

DRUGS (4)
  1. OXYCONTIN [Concomitant]
     Dosage: 20 MILLIGRAM;
  2. PERCOCET [Concomitant]
  3. NEURONTIN [Concomitant]
     Indication: NEURALGIA
     Dosage: 900 MILLIGRAM;
  4. AMRIX [Suspect]
     Indication: MUSCLE SPASMS
     Dosage: 30 MILLIGRAM;
     Route: 048
     Dates: start: 20080822, end: 20080823

REACTIONS (1)
  - GRAND MAL CONVULSION [None]
